FAERS Safety Report 4304297-8 (Version None)
Quarter: 2004Q1

REPORT INFORMATION
  Report Type: 
  Country: None (occurrence: None)
  Receive Date: 20040224
  Receipt Date: 20040212
  Transmission Date: 20041129
  Serious: Yes (Other)
  Sender: FDA-Public Use
  Company Number: 2004009703

PATIENT
  Age: 76 Year
  Sex: Female
  Weight: 56.246 kg

DRUGS (5)
  1. GLUCOTROL XL [Suspect]
     Indication: DIABETES MELLITUS
     Dosage: 15 MG (DAILY), ORAL
     Route: 048
  2. PIOGLITAZONE HCL [Concomitant]
  3. DIGOXIN [Concomitant]
  4. LOSARTAN POTASSIUM (LOSARTAN POTASSIUM) [Concomitant]
  5. INSULIN GLARGINE (INSULIN GLARGINE) [Concomitant]

REACTIONS (9)
  - BACK PAIN [None]
  - BLOOD GLUCOSE INCREASED [None]
  - BLOOD TRIGLYCERIDES ABNORMAL [None]
  - CONSTIPATION [None]
  - DIVERTICULITIS [None]
  - DRUG EFFECT DECREASED [None]
  - MENINGIOMA MALIGNANT [None]
  - POLYURIA [None]
  - URINARY INCONTINENCE [None]
